FAERS Safety Report 10045264 (Version 3)
Quarter: 2014Q2

REPORT INFORMATION
  Report Type: Spontaneous
  Country: GB (occurrence: GB)
  Receive Date: 20140328
  Receipt Date: 20140408
  Transmission Date: 20141212
  Serious: Yes (Death, Other)
  Sender: FDA-Public Use
  Company Number: GB-PFIZER INC-2013373246

PATIENT
  Age: 45 Year
  Sex: Female

DRUGS (24)
  1. CITALOPRAM [Suspect]
     Indication: ANTIDEPRESSANT THERAPY
     Dosage: 40 MG, DAILY
     Route: 048
  2. GABAPENTIN [Interacting]
     Indication: ANTIDEPRESSANT THERAPY
     Dosage: 400 MG, 3X/DAY
     Route: 048
  3. OXYCONTIN [Interacting]
     Indication: PAIN
     Dosage: 120 MG, 2X/DAY
     Route: 048
  4. OXYCONTIN [Interacting]
     Dosage: 60 MG, 2X/DAY
     Route: 048
  5. OXYNORM [Interacting]
     Dosage: 20 ML, AS REQUIRED 1-2 HOURLY
     Route: 048
  6. DIAZEPAM [Interacting]
     Dosage: 10 MG, UNK
  7. XARELTO [Concomitant]
     Indication: ANTICOAGULANT THERAPY
     Dosage: 20 MG, 3X/DAY
  8. AMITRIPTYLINE [Concomitant]
     Dosage: 50 MG, 2X/DAY
  9. AZATHIOPRINE [Concomitant]
     Dosage: 75MG (50+25)MG DAILY
  10. CALCICHEW D3 [Concomitant]
     Dosage: 1 TABLET BID
  11. CHLORPHENAMINE [Concomitant]
     Dosage: 4 MG, 4X/DAY
  12. CLENIL MODULITE [Concomitant]
     Dosage: 50 MCG, UNK
     Route: 055
  13. COLCHICINE [Concomitant]
     Dosage: 750 UG, DAILY (1 TABLET, DAILY)
  14. LOPERAMIDE [Concomitant]
     Dosage: 8 MG, 4X/DAY
  15. OMEPRAZOLE [Concomitant]
     Dosage: 40 MG, DAILY
  16. ONDANSETRON [Concomitant]
     Dosage: 8 MG, 3X/DAY
  17. OPTIVE [Concomitant]
     Dosage: 1 DF, DAILY 0.5 %
  18. OXYBUTYNIN [Concomitant]
     Dosage: 5 MG, UNK
  19. PARACETAMOL [Concomitant]
     Dosage: 1000 MG 4X/DAY
  20. PREDNISONE [Concomitant]
     Dosage: 5 MG, 2X/DAY
  21. QUININE SULFATE [Concomitant]
     Dosage: 200 MG, DAILY (NOCTE)
  22. REGURIN [Concomitant]
     Dosage: 60 MG, DAILY
  23. VENTOLIN [Concomitant]
     Dosage: 100 UG, AS NEEDED (BID PRN)
     Route: 055
  24. ZOPICLONE [Concomitant]
     Dosage: 7.5 MG, DAILY (NOCTE)

REACTIONS (6)
  - Overdose [Fatal]
  - Accidental overdose [Fatal]
  - Respiratory failure [Fatal]
  - Drug interaction [Unknown]
  - Gastrointestinal stoma complication [Unknown]
  - Wound haemorrhage [Unknown]
